FAERS Safety Report 13084432 (Version 1)
Quarter: 2017Q1

REPORT INFORMATION
  Report Type: Spontaneous
  Country: US (occurrence: US)
  Receive Date: 20170103
  Receipt Date: 20170103
  Transmission Date: 20170428
  Serious: Yes (Other)
  Sender: FDA-Public Use
  Company Number: None

PATIENT
  Age: 66 Year
  Sex: Female
  Weight: 50.39 kg

DRUGS (6)
  1. KIRKLAND ADULT MULTIVITAMIN [Concomitant]
  2. BIOTIN [Concomitant]
     Active Substance: BIOTIN
  3. PRAVASTATIN. [Concomitant]
     Active Substance: PRAVASTATIN
  4. PROLIA [Suspect]
     Active Substance: DENOSUMAB
     Indication: OSTEOPOROSIS
     Route: 030
     Dates: start: 20161201, end: 20161201
  5. PRESERVISION [Concomitant]
     Active Substance: MINERALS\VITAMINS
  6. CALCIUM [Concomitant]
     Active Substance: CALCIUM

REACTIONS (2)
  - Alopecia [None]
  - Emotional distress [None]

NARRATIVE: CASE EVENT DATE: 20161202
